FAERS Safety Report 9106387 (Version 1)
Quarter: 2013Q1

REPORT INFORMATION
  Report Type: Spontaneous
  Country: KR (occurrence: KR)
  Receive Date: 20130221
  Receipt Date: 20130221
  Transmission Date: 20140127
  Serious: Yes (Life-Threatening, Other)
  Sender: FDA-Public Use
  Company Number: KR-PFIZER INC-2013030424

PATIENT
  Age: 59 Year
  Sex: Male

DRUGS (3)
  1. CISPLATIN [Suspect]
     Indication: OESOPHAGEAL SQUAMOUS CELL CARCINOMA STAGE III
     Dosage: 100 MG/M2, DAILY FOR 5 DAYS
  2. CISPLATIN [Suspect]
     Dosage: 100 MG/M2, DAILY FOR 3 DAYS
  3. 5-FU [Concomitant]
     Indication: OESOPHAGEAL SQUAMOUS CELL CARCINOMA STAGE III
     Dosage: 1000 MG/M2, CYCLIC

REACTIONS (14)
  - Incorrect dose administered [Unknown]
  - Thrombophlebitis septic [Recovered/Resolved]
  - Agranulocytosis [Recovered/Resolved]
  - Renal failure acute [Recovered/Resolved]
  - Deafness [Recovered/Resolved]
  - Nausea [Recovered/Resolved]
  - Vomiting [Recovered/Resolved]
  - Visual impairment [Recovered/Resolved]
  - Hallucination, visual [Unknown]
  - Neuropathy peripheral [Unknown]
  - Somnolence [Unknown]
  - Asthenia [Unknown]
  - Transaminases increased [Unknown]
  - Coagulation time prolonged [Unknown]
